FAERS Safety Report 19517457 (Version 1)
Quarter: 2021Q3

REPORT INFORMATION
  Report Type: Spontaneous
  Country: GB (occurrence: GB)
  Receive Date: 20210712
  Receipt Date: 20210712
  Transmission Date: 20211014
  Serious: Yes (Death, Life-Threatening, Hospitalization, Disabling)
  Sender: FDA-Public Use
  Company Number: GB-DEXPHARM-20211045

PATIENT
  Age: 27 Year
  Sex: Female

DRUGS (2)
  1. TACROLIMUS (IMMUNOSUPPRESSANT) [Interacting]
     Active Substance: TACROLIMUS
     Indication: KIDNEY TRANSPLANT REJECTION
  2. OMEPRAZOLE. [Suspect]
     Active Substance: OMEPRAZOLE
     Indication: RENAL FAILURE

REACTIONS (1)
  - Drug interaction [Not Recovered/Not Resolved]
